FAERS Safety Report 22101125 (Version 1)
Quarter: 2023Q1

REPORT INFORMATION
  Report Type: Spontaneous
  Country: SA (occurrence: SA)
  Receive Date: 20230316
  Receipt Date: 20230316
  Transmission Date: 20230418
  Serious: Yes (Other)
  Sender: FDA-Public Use
  Company Number: SA-BAYER-2023A032645

PATIENT
  Age: 33 Year
  Sex: Female

DRUGS (7)
  1. ILOPROST [Suspect]
     Active Substance: ILOPROST
     Indication: Pulmonary hypertension
     Route: 055
  2. ILOPROST [Suspect]
     Active Substance: ILOPROST
     Indication: Dyspnoea
     Route: 055
  3. SILDENAFIL [Concomitant]
     Active Substance: SILDENAFIL
     Indication: Pulmonary hypertension
  4. SILDENAFIL [Concomitant]
     Active Substance: SILDENAFIL
     Indication: Dyspnoea
  5. OXYGEN [Concomitant]
     Active Substance: OXYGEN
     Indication: Pulmonary hypertension
  6. OXYGEN [Concomitant]
     Active Substance: OXYGEN
     Indication: Dyspnoea
  7. MACITENTAN [Concomitant]
     Active Substance: MACITENTAN

REACTIONS (2)
  - Premature delivery [Unknown]
  - Maternal exposure during pregnancy [Unknown]
